FAERS Safety Report 4970526-0 (Version None)
Quarter: 2006Q2

REPORT INFORMATION
  Report Type: 
  Country: None (occurrence: None)
  Receive Date: 20060412
  Receipt Date: 20060321
  Transmission Date: 20061013
  Serious: Yes (Other)
  Sender: FDA-Public Use
  Company Number: BR-GILEAD-2006-0009342

PATIENT
  Age: 55 Year
  Sex: Female

DRUGS (6)
  1. HEPSERA [Suspect]
     Indication: HEPATITIS B
     Route: 048
     Dates: start: 20060320
  2. HEPSERA [Suspect]
     Route: 048
     Dates: start: 20040201, end: 20060311
  3. ALENDRONATE SODIUM [Concomitant]
  4. CANDICORT [Concomitant]
  5. HYDROQUINONE [Concomitant]
  6. LOSERIL (ANTIMYCOTIC) [Concomitant]

REACTIONS (1)
  - NEUTROPENIA [None]
